FAERS Safety Report 12161459 (Version 1)
Quarter: 2016Q1

REPORT INFORMATION
  Report Type: Spontaneous
  Country: US (occurrence: US)
  Receive Date: 20160308
  Receipt Date: 20160308
  Transmission Date: 20160526
  Serious: No
  Sender: FDA-Public Use
  Company Number: US-AMGEN-USASP2016027149

PATIENT
  Age: 73 Year
  Sex: Female

DRUGS (1)
  1. ENBREL [Suspect]
     Active Substance: ETANERCEPT
     Indication: RHEUMATOID ARTHRITIS
     Dosage: 50 MG, QWK
     Route: 058
     Dates: start: 201508

REACTIONS (5)
  - Rash [Unknown]
  - Herpes zoster [Recovered/Resolved]
  - Dry skin [Unknown]
  - Erythema [Unknown]
  - Exfoliative rash [Unknown]

NARRATIVE: CASE EVENT DATE: 201508
